FAERS Safety Report 6717278-1 (Version None)
Quarter: 2010Q2

REPORT INFORMATION
  Report Type: 
  Country: None (occurrence: None)
  Receive Date: 20100505
  Receipt Date: 20100422
  Transmission Date: 20101027
  Serious: Yes (Hospitalization)
  Sender: FDA-Public Use
  Company Number: 2009AL003779

PATIENT
  Age: 84 Year
  Sex: Female

DRUGS (10)
  1. SPIRONOLACTONE [Suspect]
     Indication: HYPERTENSION
     Dosage: 50 MG; QD; PO
     Route: 048
     Dates: start: 20090504
  2. RAMIPRIL [Suspect]
     Indication: HYPERTENSION
     Dosage: 5 MG; QD; PO
     Route: 048
     Dates: start: 20090504
  3. ACTRAPID HUMAN [Concomitant]
  4. ASPIRIN [Concomitant]
  5. CARMEN [Concomitant]
  6. DIGITOXIN [Concomitant]
  7. GLUCOBAY [Concomitant]
  8. METHIZOL [Concomitant]
  9. NOVOMIX [Concomitant]
  10. TORASEMIDE [Concomitant]

REACTIONS (2)
  - HYPERKALAEMIA [None]
  - RENAL FAILURE [None]
